FAERS Safety Report 7764863-4 (Version None)
Quarter: 2011Q3

REPORT INFORMATION
  Report Type: 
  Country: None (occurrence: None)
  Receive Date: 20110921
  Receipt Date: 20110912
  Transmission Date: 20111222
  Serious: Yes (Congenital Anomaly)
  Sender: FDA-Public Use
  Company Number: US-ROCHE-651750

PATIENT
  Sex: Male
  Weight: 9.5 kg

DRUGS (14)
  1. TRASTUZUMAB [Suspect]
     Indication: BREAST CANCER
     Route: 064
  2. NYSTATIN [Concomitant]
     Dosage: UNK
     Dates: start: 20091109, end: 20091130
  3. GUAIFENESIN [Concomitant]
     Indication: RESPIRATORY SYNCYTIAL VIRUS INFECTION
     Dosage: UNK
     Dates: start: 20100105, end: 20100129
  4. BACTROBAN [Concomitant]
     Indication: RASH
     Dosage: UNK
     Dates: start: 20091109, end: 20091130
  5. ALBUTEROL [Concomitant]
     Indication: RESPIRATORY SYNCYTIAL VIRUS INFECTION
     Dosage: UNK
     Dates: start: 20100105, end: 20100121
  6. ZITHROMAX [Concomitant]
  7. OMNICEF [Concomitant]
     Dosage: 1 TSP, QD
     Dates: start: 20100129, end: 20100201
  8. ATUSS DS [Concomitant]
     Dosage: 3 ML, Q12H
     Dates: start: 20100129
  9. NYSTATIN [Concomitant]
     Indication: RASH
     Dosage: UNK
     Dates: start: 20090626
  10. ZITHROMAX [Concomitant]
     Indication: NASAL CONGESTION
     Dosage: UNK
     Dates: start: 20091204, end: 20091208
  11. ALBUTEROL [Concomitant]
     Dosage: UNK
     Dates: start: 20100121, end: 20100129
  12. AUGMENTIN '125' [Concomitant]
     Dosage: UNK
     Dates: start: 20100220
  13. ALBUTEROL [Concomitant]
     Dosage: UNK
  14. AUGMENTIN '125' [Concomitant]
     Indication: RESPIRATORY SYNCYTIAL VIRUS INFECTION
     Dosage: 200 MG, UNK
     Dates: start: 20100105, end: 20100101

REACTIONS (7)
  - MILIA [None]
  - RESPIRATORY SYNCYTIAL VIRUS INFECTION [None]
  - VENTRICULAR SEPTAL DEFECT [None]
  - NASAL CONGESTION [None]
  - RHINORRHOEA [None]
  - RESPIRATORY TRACT INFECTION [None]
  - COW'S MILK INTOLERANCE [None]
